FAERS Safety Report 18251826 (Version 1)
Quarter: 2020Q3

REPORT INFORMATION
  Report Type: Spontaneous
  Country: US (occurrence: US)
  Receive Date: 20200910
  Receipt Date: 20200910
  Transmission Date: 20201103
  Serious: No
  Sender: FDA-Public Use
  Company Number: US-TEVA-2020-US-1827021

PATIENT
  Age: 35 Year
  Sex: Female

DRUGS (8)
  1. PRAZOSIN 4 MG [Concomitant]
  2. GABAPENTIN 900 MG [Concomitant]
  3. PARNATE 30 MG [Concomitant]
  4. BENZTROPINE 1 MG [Concomitant]
     Active Substance: BENZTROPINE
     Dosage: 2 MILLIGRAM DAILY;
  5. WELLBUTRIN SR 300 MG [Concomitant]
  6. AUSTEDO [Suspect]
     Active Substance: DEUTETRABENAZINE
     Indication: TARDIVE DYSKINESIA
     Dosage: 12 MILLIGRAM DAILY;
     Dates: start: 2020
  7. SAPHRIS 20 MG [Concomitant]
  8. TRAZADONE 75 MG [Concomitant]

REACTIONS (1)
  - Depression [Unknown]
